FAERS Safety Report 6827749-5 (Version None)
Quarter: 2010Q3

REPORT INFORMATION
  Report Type: 
  Country: None (occurrence: None)
  Receive Date: 20100709
  Receipt Date: 20070126
  Transmission Date: 20110219
  Serious: Yes (Other)
  Sender: FDA-Public Use
  Company Number: US-PFIZER INC-2007007315

PATIENT
  Sex: Female
  Weight: 78.5 kg

DRUGS (12)
  1. CHANTIX [Suspect]
     Indication: SMOKING CESSATION THERAPY
     Dates: start: 20061101, end: 20070101
  2. THEODUR ^ELAN^ [Concomitant]
  3. ALBUTEROL [Concomitant]
  4. ALBUTEROL [Concomitant]
  5. ADVAIR DISKUS 100/50 [Concomitant]
  6. ATROVENT [Concomitant]
  7. PAXIL [Concomitant]
  8. PREVACID [Concomitant]
  9. TRAZODONE [Concomitant]
  10. PREDNISONE [Concomitant]
     Indication: LUNG DISORDER
  11. TENUATE DOSPAN [Concomitant]
  12. NICOPATCH [Concomitant]

REACTIONS (3)
  - CRYING [None]
  - LAZINESS [None]
  - LETHARGY [None]
